FAERS Safety Report 19033385 (Version 1)
Quarter: 2021Q1

REPORT INFORMATION
  Report Type: Spontaneous
  Country: US (occurrence: US)
  Receive Date: 20210319
  Receipt Date: 20210319
  Transmission Date: 20210420
  Serious: Yes (Other)
  Sender: FDA-Public Use
  Company Number: US-GLAXOSMITHKLINE-US2021GSK065961

PATIENT
  Sex: Male

DRUGS (2)
  1. ZANTAC [Suspect]
     Active Substance: RANITIDINE HYDROCHLORIDE
     Indication: GASTRIC OPERATION
     Dosage: 150 MG, QD
     Route: 065
     Dates: start: 199809, end: 200505
  2. ZANTAC [Suspect]
     Active Substance: RANITIDINE HYDROCHLORIDE
     Indication: GASTRIC OPERATION
     Dosage: 150 MG, QD
     Route: 065
     Dates: start: 199809, end: 200505

REACTIONS (1)
  - Prostate cancer [Unknown]
